FAERS Safety Report 15740761 (Version 2)
Quarter: 2019Q1

REPORT INFORMATION
  Report Type: Report from Study
  Country: US (occurrence: US)
  Receive Date: 20181219
  Receipt Date: 20190103
  Transmission Date: 20190417
  Serious: Yes (Death, Hospitalization, Other)
  Sender: FDA-Public Use
  Company Number: US-GILEAD-2018-0381011

PATIENT
  Age: 88 Year
  Sex: Male

DRUGS (5)
  1. TADALAFIL. [Concomitant]
     Active Substance: TADALAFIL
  2. DILTIAZEM. [Concomitant]
     Active Substance: DILTIAZEM
  3. UPTRAVI [Concomitant]
     Active Substance: SELEXIPAG
  4. WARFARIN [Concomitant]
     Active Substance: WARFARIN
  5. AMBRISENTAN [Suspect]
     Active Substance: AMBRISENTAN
     Indication: PRODUCT USED FOR UNKNOWN INDICATION
     Dosage: 10 MG, QD
     Route: 065
     Dates: start: 20150929

REACTIONS (3)
  - Urinary tract infection [Unknown]
  - Death [Fatal]
  - Pneumonia [Unknown]

NARRATIVE: CASE EVENT DATE: 20181221
